FAERS Safety Report 9250024 (Version 1)
Quarter: 2013Q2

REPORT INFORMATION
  Report Type: Spontaneous
  Country: FI (occurrence: FI)
  Receive Date: 20130424
  Receipt Date: 20130424
  Transmission Date: 20140414
  Serious: Yes (Hospitalization)
  Sender: FDA-Public Use
  Company Number: FI-ROCHE-1216526

PATIENT
  Age: 61 Year
  Sex: Female

DRUGS (8)
  1. MABTHERA [Suspect]
     Indication: RHEUMATOID ARTHRITIS
     Dosage: LAST DOSE NOV/2012
     Route: 042
  2. KLEXANE [Suspect]
     Indication: PRODUCT USED FOR UNKNOWN INDICATION
     Route: 065
  3. REUMACON [Concomitant]
  4. OXIKLORIN [Concomitant]
     Route: 065
  5. BISOPROACT [Concomitant]
     Route: 065
  6. TAMBOCOR [Concomitant]
     Route: 065
  7. PRADAXA [Concomitant]
     Route: 065
  8. STELLA [Concomitant]
     Route: 065

REACTIONS (3)
  - Sepsis [Recovered/Resolved]
  - Neutropenia [Recovered/Resolved]
  - Ill-defined disorder [Recovered/Resolved]
